FAERS Safety Report 10424489 (Version 1)
Quarter: 2014Q3

REPORT INFORMATION
  Report Type: Spontaneous
  Country: DK (occurrence: DK)
  Receive Date: 20140902
  Receipt Date: 20140902
  Transmission Date: 20150326
  Serious: Yes (Other)
  Sender: FDA-Public Use
  Company Number: DK-WATSON-2014-18787

PATIENT
  Age: 67 Year
  Sex: Female
  Weight: 67 kg

DRUGS (2)
  1. CIPROFLOXACIN. [Suspect]
     Active Substance: CIPROFLOXACIN
     Indication: PERITONITIS
     Dosage: UNK. AT 10 AND AT 22
     Route: 048
     Dates: start: 20140501, end: 20140517
  2. HEXAMYCIN [Suspect]
     Active Substance: GENTAMICIN
     Indication: PERITONITIS
     Dosage: UNK.  1.5 ML AT 22 (1.5 ML REDUCED TO 1 ML). STYRKE: 40 MG/ML
     Route: 042
     Dates: start: 20140501, end: 20140517

REACTIONS (3)
  - Tinnitus [Recovering/Resolving]
  - Hypoacusis [Recovering/Resolving]
  - Dizziness [Recovering/Resolving]

NARRATIVE: CASE EVENT DATE: 20140515
